FAERS Safety Report 8252904-X (Version None)
Quarter: 2012Q2

REPORT INFORMATION
  Report Type: 
  Country: None (occurrence: None)
  Receive Date: 20120402
  Receipt Date: 20120223
  Transmission Date: 20120825
  Serious: No
  Sender: FDA-Public Use
  Company Number: US-ABBOTT-12P-163-0898858-00

PATIENT
  Age: 71 Year
  Sex: Male
  Weight: 133.93 kg

DRUGS (5)
  1. HYDROCHLOROTHIAZIDE [Concomitant]
     Indication: BLOOD PRESSURE
  2. CRESTOR [Concomitant]
     Indication: BLOOD CHOLESTEROL
  3. ANDROGEL [Suspect]
     Indication: BLOOD TESTOSTERONE DECREASED
     Dosage: ONE PUMP PER DAY
     Dates: start: 20110101
  4. AMLODIPINE [Concomitant]
     Indication: BLOOD PRESSURE
  5. LISINOPRIL [Concomitant]
     Indication: BLOOD PRESSURE

REACTIONS (2)
  - URINE ABNORMALITY [None]
  - DRUG SCREEN POSITIVE [None]
